FAERS Safety Report 24891185 (Version 5)
Quarter: 2025Q4

REPORT INFORMATION
  Report Type: Spontaneous
  Country: CH (occurrence: CH)
  Receive Date: 20250127
  Receipt Date: 20251229
  Transmission Date: 20260118
  Serious: Yes (Other)
  Sender: PFIZER
  Company Number: CH-MLMSERVICE-20250113-PI347551-00082-1

PATIENT
  Age: 63 Year
  Sex: Female
  Weight: 62 kg

DRUGS (7)
  1. EPIRUBICIN HYDROCHLORIDE [Suspect]
     Active Substance: EPIRUBICIN HYDROCHLORIDE
     Indication: Invasive ductal breast carcinoma
     Dosage: 150 MG, CYCLIC (4 CYCLES OF EC)
     Route: 042
     Dates: start: 20220623, end: 20220625
  2. PACLITAXEL [Suspect]
     Active Substance: PACLITAXEL
     Indication: Invasive ductal breast carcinoma
     Dosage: 130 MG, CYCLIC (4 CYCLES OF PACLITAXEL 130 MG)
     Route: 042
     Dates: start: 20220331, end: 20220617
  3. CARBOPLATIN [Suspect]
     Active Substance: CARBOPLATIN
     Indication: Invasive ductal breast carcinoma
     Dosage: 480 MG, CYCLIC (4 CYCLES OF CARBOPLASTIN 480 MG INFUSION)
     Route: 042
     Dates: start: 20220331, end: 20220617
  4. CYCLOPHOSPHAMIDE [Suspect]
     Active Substance: CYCLOPHOSPHAMIDE
     Indication: Invasive ductal breast carcinoma
     Dosage: 1000 MG, CYCLIC (4 CYCLES OF EC)
     Route: 042
     Dates: start: 20220623, end: 20220625
  5. PEMBROLIZUMAB [Suspect]
     Active Substance: PEMBROLIZUMAB
     Indication: Invasive ductal breast carcinoma
     Dosage: 200 MG, CYCLIC (4 CYCLES OF PEMBROLIZUMAB 200 MG INFUSION)
     Route: 042
     Dates: start: 20220331, end: 20220617
  6. PEMBROLIZUMAB [Suspect]
     Active Substance: PEMBROLIZUMAB
     Dosage: 200 MG, CYCLIC (ADDTIONAL 4 CYCLES OF PEMBROLIZUMAB 200 MG INFUSION)
     Route: 042
     Dates: start: 20220623, end: 20220625
  7. PEMBROLIZUMAB [Suspect]
     Active Substance: PEMBROLIZUMAB
     Dosage: 200 MG, CYCLIC (ADDTIONAL 5 CYCLES OF PEMBROLIZUMAB 200 MG INFUSION)
     Route: 042
     Dates: start: 20221019, end: 20230405

REACTIONS (2)
  - Microvascular coronary artery disease [Unknown]
  - Cardiotoxicity [Unknown]

NARRATIVE: CASE EVENT DATE: 20220101
